FAERS Safety Report 8514299-3 (Version None)
Quarter: 2012Q3

REPORT INFORMATION
  Report Type: 
  Country: None (occurrence: None)
  Receive Date: 20120717
  Receipt Date: 20120706
  Transmission Date: 20120928
  Serious: Yes (Hospitalization, Other)
  Sender: FDA-Public Use
  Company Number: JP-VERTEX PHARMACEUTICALS INC.-AE-2012-005300

PATIENT
  Age: 66 Year
  Sex: Male

DRUGS (46)
  1. REBETOL [Concomitant]
     Route: 048
     Dates: start: 20120229, end: 20120325
  2. PLAVIX [Concomitant]
     Route: 048
     Dates: start: 20120209, end: 20120419
  3. ADOFEED [Concomitant]
     Route: 061
     Dates: start: 20120316, end: 20120325
  4. LENDORMIN [Concomitant]
     Route: 048
     Dates: start: 20120323, end: 20120405
  5. REFLEX [Concomitant]
     Route: 048
     Dates: start: 20120323, end: 20120328
  6. DEXTROMETHORPHAN HYDROBROMIDE [Concomitant]
     Route: 048
     Dates: start: 20120417, end: 20120419
  7. HIRUDOID [Concomitant]
     Route: 061
     Dates: start: 20120413, end: 20120419
  8. REBETOL [Concomitant]
     Route: 048
     Dates: start: 20120222, end: 20120228
  9. PEGINTERFERON ALFA-2B [Concomitant]
     Indication: HEPATITIS C
     Route: 058
     Dates: start: 20120215, end: 20120323
  10. BISOPROLOL FUMARATE [Concomitant]
     Route: 048
     Dates: start: 20120209, end: 20120419
  11. ZOLPIDEM [Concomitant]
     Route: 048
     Dates: start: 20120216, end: 20120229
  12. ACETAMINOPHEN [Concomitant]
     Route: 048
     Dates: start: 20120329, end: 20120411
  13. SOLITA-T NO.1 [Concomitant]
     Dates: start: 20120227, end: 20120330
  14. DOGMATYL [Concomitant]
     Route: 048
     Dates: start: 20120310, end: 20120328
  15. HYALEIN [Concomitant]
     Route: 031
     Dates: start: 20120314, end: 20120320
  16. ZADITEN [Concomitant]
     Route: 031
     Dates: start: 20120314, end: 20120320
  17. GASMOTIN [Concomitant]
     Route: 048
     Dates: start: 20120425, end: 20120517
  18. PEGASYS [Concomitant]
     Route: 058
     Dates: start: 20120215, end: 20120215
  19. PURSENNID [Concomitant]
     Route: 048
     Dates: start: 20120215, end: 20120228
  20. ATARAX [Concomitant]
     Route: 051
     Dates: start: 20120424, end: 20120424
  21. AMLODIPINE BESYLATE [Concomitant]
     Route: 048
     Dates: end: 20120419
  22. EXFORGE [Concomitant]
     Route: 048
     Dates: start: 20120209, end: 20120222
  23. FAMOTIDINE [Concomitant]
     Route: 048
     Dates: start: 20120425, end: 20120517
  24. ACETAMINOPHEN [Concomitant]
     Route: 048
     Dates: start: 20120224, end: 20120308
  25. FUCIDIN LEO [Concomitant]
     Route: 061
     Dates: start: 20120413, end: 20120419
  26. TELAVIC (TELAPREVIR) [Suspect]
     Indication: HEPATITIS C
     Route: 048
     Dates: start: 20120215, end: 20120221
  27. REBETOL [Concomitant]
     Indication: HEPATITIS C
     Route: 048
     Dates: start: 20120215, end: 20120221
  28. PLAVIX [Concomitant]
     Route: 048
     Dates: start: 20120425, end: 20120517
  29. KENEI G [Concomitant]
     Route: 054
     Dates: start: 20120222, end: 20120228
  30. ATARAX [Concomitant]
     Route: 051
     Dates: start: 20120324, end: 20120324
  31. ALLOPURINOL [Concomitant]
     Route: 048
     Dates: start: 20120225, end: 20120429
  32. URSO 250 [Concomitant]
     Route: 048
     Dates: start: 20120209, end: 20120209
  33. ASPIRIN [Concomitant]
     Route: 048
     Dates: start: 20120425, end: 20120517
  34. GASMOTIN [Concomitant]
     Route: 048
     Dates: start: 20120219, end: 20120419
  35. DIOVAN [Concomitant]
     Route: 048
     Dates: start: 20120502, end: 20120517
  36. URSO 250 [Concomitant]
     Route: 048
     Dates: start: 20120425, end: 20120517
  37. TELAVIC (TELAPREVIR) [Suspect]
     Route: 048
     Dates: start: 20120222, end: 20120325
  38. ASPIRIN [Concomitant]
     Route: 048
     Dates: start: 20120209, end: 20120419
  39. BISOPROLOL FUMARATE [Concomitant]
     Route: 048
     Dates: start: 20120425, end: 20120517
  40. FAMOTIDINE [Concomitant]
     Route: 048
     Dates: start: 20120209, end: 20120419
  41. SOLITA-T NO. 3 [Concomitant]
     Dates: start: 20120226, end: 20120227
  42. AMLODIPINE BESYLATE [Concomitant]
     Route: 048
     Dates: start: 20120502, end: 20120517
  43. EXFORGE [Concomitant]
     Route: 048
     Dates: start: 20120425, end: 20120515
  44. BIO-THREE [Concomitant]
     Route: 048
     Dates: start: 20120210, end: 20120211
  45. LOXONIN [Concomitant]
     Route: 061
     Dates: start: 20120322, end: 20120328
  46. DIOVAN [Concomitant]
     Route: 048
     Dates: end: 20120419

REACTIONS (4)
  - ANAEMIA [None]
  - HYPERURICAEMIA [None]
  - RENAL DISORDER [None]
  - DEPRESSION [None]
